FAERS Safety Report 9046479 (Version 1)
Quarter: 2013Q1

REPORT INFORMATION
  Report Type: Spontaneous
  Country: US (occurrence: None)
  Receive Date: 20130128
  Receipt Date: 20130128
  Transmission Date: 20140127
  Serious: Yes (Other)
  Sender: FDA-Public Use
  Company Number: None

PATIENT
  Age: 48 Year
  Sex: Female
  Weight: 63.5 kg

DRUGS (1)
  1. ESCITALOPRAM [Suspect]
     Indication: DEPRESSION
     Dosage: ONE A DAY PO
     Route: 048
     Dates: start: 20121203, end: 20121209

REACTIONS (4)
  - Product substitution issue [None]
  - Abdominal pain upper [None]
  - Depression [None]
  - Anxiety [None]
